FAERS Safety Report 7551651-7 (Version None)
Quarter: 2011Q2

REPORT INFORMATION
  Report Type: 
  Country: None (occurrence: None)
  Receive Date: 20110616
  Receipt Date: 20110613
  Transmission Date: 20111010
  Serious: Yes (Hospitalization, Other)
  Sender: FDA-Public Use
  Company Number: US-PFIZER INC-2011129812

PATIENT
  Sex: Male
  Weight: 99.77 kg

DRUGS (6)
  1. LIPITOR [Concomitant]
     Indication: BLOOD CHOLESTEROL INCREASED
     Dosage: 40 MG, 1X/DAY
  2. ABILIFY [Concomitant]
     Indication: DEPRESSION
     Dosage: 530 MG, DAILY
  3. AMLODIPINE/OLMESARTAN MEDOXOMIL [Concomitant]
     Indication: HYPERTENSION
     Dosage: 5/20 MG, UNK
  4. EFFEXOR [Suspect]
     Indication: DEPRESSION
     Dosage: 75 MG, 3X/DAY
     Route: 048
  5. VENLAFAXINE HCL [Suspect]
     Indication: DEPRESSION
     Dosage: 75 MG, DAILY
     Route: 048
     Dates: start: 20110101
  6. NEURONTIN [Suspect]
     Indication: DEPRESSION
     Dosage: 300 MG, 3X/DAY
     Route: 048
     Dates: start: 20110201

REACTIONS (3)
  - DRUG INEFFECTIVE [None]
  - DEPRESSION [None]
  - SOMNOLENCE [None]
